FAERS Safety Report 15686906 (Version 1)
Quarter: 2018Q4

REPORT INFORMATION
  Report Type: Spontaneous
  Country: US (occurrence: US)
  Receive Date: 20181204
  Receipt Date: 20181204
  Transmission Date: 20190205
  Serious: Yes (Hospitalization)
  Sender: FDA-Public Use
  Company Number: US-GLASSHOUSE PHARMACEUTICALS LIMITED CA-2018GLH00005

PATIENT
  Age: 8 Year
  Sex: Female

DRUGS (5)
  1. CLINDAMYCIN. [Suspect]
     Active Substance: CLINDAMYCIN
     Indication: STAPHYLOCOCCAL INFECTION
     Dosage: UNK, TWICE (1/100TH FULL THERAPEUTIC DOSE, THEN 1/10TH)
     Route: 048
  2. CLINDAMYCIN. [Suspect]
     Active Substance: CLINDAMYCIN
     Dosage: UNK
     Route: 048
  3. CLINDAMYCIN. [Suspect]
     Active Substance: CLINDAMYCIN
     Indication: OSTEOMYELITIS
     Dosage: UNK UNK, ONCE
     Route: 048
  4. CLINDAMYCIN. [Suspect]
     Active Substance: CLINDAMYCIN
     Dosage: 33 MG/KG/DAY DIVIDED Q 8 HOURS
     Route: 048
  5. CLINDAMYCIN. [Suspect]
     Active Substance: CLINDAMYCIN
     Dosage: Q 12 HOURS

REACTIONS (1)
  - Anaphylactic reaction [Recovered/Resolved]
